FAERS Safety Report 10193771 (Version 1)
Quarter: 2014Q2

REPORT INFORMATION
  Report Type: Spontaneous
  Country: US (occurrence: US)
  Receive Date: 20140524
  Receipt Date: 20140524
  Transmission Date: 20141212
  Serious: No
  Sender: FDA-Public Use
  Company Number: US-SANOFI-AVENTIS-2013SA043261

PATIENT
  Age: 68 Year
  Sex: Female
  Weight: 113 kg

DRUGS (2)
  1. LANTUS SOLOSTAR [Suspect]
     Indication: TYPE 2 DIABETES MELLITUS
     Dosage: STRENGTH: 100 IU/ML DOSE:35 UNIT(S)
     Route: 051
     Dates: start: 2013
  2. SOLOSTAR [Suspect]
     Indication: DEVICE THERAPY
     Dates: start: 2013

REACTIONS (3)
  - Injection site reaction [Unknown]
  - Injection site extravasation [Unknown]
  - Drug dose omission [Unknown]
